FAERS Safety Report 23065550 (Version 1)
Quarter: 2023Q4

REPORT INFORMATION
  Report Type: Spontaneous
  Country: US (occurrence: US)
  Receive Date: 20231013
  Receipt Date: 20231013
  Transmission Date: 20240110
  Serious: No
  Sender: FDA-Public Use
  Company Number: US-Merz Pharmaceuticals GmbH-23-03087

PATIENT
  Sex: Male

DRUGS (3)
  1. XEOMIN [Suspect]
     Active Substance: INCOBOTULINUMTOXINA
     Indication: Muscle spasticity
  2. XEOMIN [Suspect]
     Active Substance: INCOBOTULINUMTOXINA
  3. XEOMIN [Suspect]
     Active Substance: INCOBOTULINUMTOXINA

REACTIONS (1)
  - Off label use [Unknown]
